FAERS Safety Report 15068676 (Version 1)
Quarter: 2018Q2

REPORT INFORMATION
  Report Type: Spontaneous
  Country: US (occurrence: US)
  Receive Date: 20180626
  Receipt Date: 20180626
  Transmission Date: 20180711
  Serious: No
  Sender: FDA-Public Use
  Company Number: US-SHIRE-US201822545

PATIENT
  Sex: Male

DRUGS (1)
  1. ELAPRASE [Suspect]
     Active Substance: IDURSULFASE
     Indication: MUCOPOLYSACCHARIDOSIS II
     Dosage: VIAL, 1X/WEEK
     Route: 042
     Dates: start: 20080408

REACTIONS (2)
  - Inappropriate schedule of drug administration [Unknown]
  - Pyrexia [Recovered/Resolved]
